FAERS Safety Report 8515010 (Version 2)
Quarter: 2012Q4

REPORT INFORMATION
  Report Type: 
  Country: AR (occurrence: AR)
  Receive Date: 20120417
  Receipt Date: 20121114
  Transmission Date: 20130627
  Serious: Yes (Other)
  Sender: FDA-Public Use
  Company Number: AR-AMGEN-ARGSP2012022490

PATIENT
  Age: 61 Year
  Sex: Male

DRUGS (3)
  1. ENBREL [Suspect]
     Indication: RHEUMATOID ARTHRITIS
     Dosage: 50 mg, weekly
     Route: 058
     Dates: start: 20110527, end: 20120328
  2. AMLOC                              /00972402/ [Concomitant]
     Dosage: UNK
  3. DAFLON                             /00426001/ [Concomitant]
     Dosage: UNK

REACTIONS (1)
  - Prostatic adenoma [Recovered/Resolved]
